FAERS Safety Report 7638372-7 (Version None)
Quarter: 2011Q3

REPORT INFORMATION
  Report Type: 
  Country: None (occurrence: None)
  Receive Date: 20110727
  Receipt Date: 20110621
  Transmission Date: 20111222
  Serious: No
  Sender: FDA-Public Use
  Company Number: US-BAYER-2011-054440

PATIENT
  Age: 61 Year
  Sex: Female
  Weight: 125 kg

DRUGS (7)
  1. FENTANYL [Concomitant]
  2. ZANTAC [Concomitant]
  3. BENTYL [Concomitant]
  4. CYMBALTA [Concomitant]
  5. PERCOCET [Concomitant]
  6. NEURONTIN [Concomitant]
  7. ALEVE [Suspect]
     Indication: PAIN
     Dosage: 1 DF, QD
     Route: 048
     Dates: start: 20110614, end: 20110622

REACTIONS (1)
  - BLOOD URINE PRESENT [None]
